FAERS Safety Report 20532940 (Version 1)
Quarter: 2022Q1

REPORT INFORMATION
  Report Type: Spontaneous
  Country: US (occurrence: None)
  Receive Date: 20220301
  Receipt Date: 20220301
  Transmission Date: 20220423
  Serious: Yes (Other)
  Sender: FDA-Public Use
  Company Number: None

PATIENT
  Age: 66 Year
  Sex: Male
  Weight: 76.5 kg

DRUGS (8)
  1. BUPRENORPHINE AND NALOXONE SUBLINGUAL FILM [Suspect]
     Active Substance: BUPRENORPHINE HYDROCHLORIDE\NALOXONE HYDROCHLORIDE
     Indication: Pain management
     Dates: start: 20191125
  2. LISINOPRIL [Concomitant]
     Active Substance: LISINOPRIL
  3. GABAPENTIN [Concomitant]
     Active Substance: GABAPENTIN
  4. WELLBUTRIN [Concomitant]
     Active Substance: BUPROPION HYDROCHLORIDE
  5. ADVAIR HFA [Concomitant]
     Active Substance: FLUTICASONE PROPIONATE\SALMETEROL XINAFOATE
  6. BUPRENORPHINE FILM [Concomitant]
  7. NUMEROUS VITAMINS [Concomitant]
  8. MINERAL SUPPLEMENTA [Concomitant]

REACTIONS (4)
  - Dental caries [None]
  - Tooth fracture [None]
  - Tooth loss [None]
  - Gingival disorder [None]

NARRATIVE: CASE EVENT DATE: 20210601
